FAERS Safety Report 12778784 (Version 4)
Quarter: 2016Q4

REPORT INFORMATION
  Report Type: Spontaneous
  Country: US (occurrence: US)
  Receive Date: 20160926
  Receipt Date: 20161220
  Transmission Date: 20170207
  Serious: Yes (Other)
  Sender: FDA-Public Use
  Company Number: US-BAUSCH-BL-2016-023051

PATIENT
  Sex: Male

DRUGS (4)
  1. RETISERT [Suspect]
     Active Substance: FLUOCINOLONE ACETONIDE
     Dosage: REPLACED RETISERT PALLET IN LEFT EYE
     Dates: start: 20160420
  2. RETISERT [Suspect]
     Active Substance: FLUOCINOLONE ACETONIDE
     Indication: UVEITIS
     Dates: start: 2010
  3. RETISERT [Suspect]
     Active Substance: FLUOCINOLONE ACETONIDE
     Dosage: REPLACED RETISERT PALLET IN RIGHT EYE
     Dates: start: 20140618
  4. COSOPT [Concomitant]
     Active Substance: DORZOLAMIDE HYDROCHLORIDE\TIMOLOL MALEATE
     Indication: PRODUCT USED FOR UNKNOWN INDICATION

REACTIONS (5)
  - Device malfunction [Unknown]
  - Visual impairment [Recovered/Resolved]
  - Device breakage [Unknown]
  - Retinal tear [Not Recovered/Not Resolved]
  - Ocular hyperaemia [Not Recovered/Not Resolved]

NARRATIVE: CASE EVENT DATE: 2014
